FAERS Safety Report 7657409-2 (Version None)
Quarter: 2011Q3

REPORT INFORMATION
  Report Type: 
  Country: None (occurrence: None)
  Receive Date: 20110804
  Receipt Date: 20110719
  Transmission Date: 20111222
  Serious: Yes (Hospitalization)
  Sender: FDA-Public Use
  Company Number: US-BAYER-2011-062594

PATIENT
  Age: 77 Year
  Sex: Female

DRUGS (5)
  1. CLOPIDOGREL [Interacting]
     Indication: CORONARY ARTERY DISEASE
  2. WARFARIN SODIUM [Interacting]
     Indication: ATRIAL FIBRILLATION
  3. ACETYLSALICYLIC ACID SRT [Suspect]
     Indication: CORONARY ARTERY DISEASE
  4. ACETYLSALICYLIC ACID SRT [Interacting]
     Indication: CORONARY ARTERIAL STENT INSERTION
  5. CLOPIDOGREL [Interacting]
     Indication: CORONARY ARTERIAL STENT INSERTION

REACTIONS (1)
  - GASTROINTESTINAL HAEMORRHAGE [None]
